FAERS Safety Report 21907759 (Version 2)
Quarter: 2023Q1

REPORT INFORMATION
  Report Type: Report from Study
  Country: SA (occurrence: SA)
  Receive Date: 20230125
  Receipt Date: 20230202
  Transmission Date: 20230418
  Serious: Yes (Other)
  Sender: FDA-Public Use
  Company Number: SA-Accord-297484

PATIENT
  Age: 58 Year
  Sex: Male

DRUGS (2)
  1. FLUOROURACIL [Suspect]
     Active Substance: FLUOROURACIL
     Indication: Colon cancer stage IV
     Dosage: ON DAY 1: 400 MG/M2 AND ON DAY 2: 2400 MG/M2.
     Route: 042
  2. REGORAFENIB [Suspect]
     Active Substance: REGORAFENIB
     Indication: Colon cancer stage IV
     Dosage: 40-80 MG FOR A WEEK AND THEN INCREASED TO 120 MG

REACTIONS (1)
  - Hypertensive urgency [Recovered/Resolved]
